FAERS Safety Report 9127487 (Version 1)
Quarter: 2013Q1

REPORT INFORMATION
  Report Type: Spontaneous
  Country: US (occurrence: US)
  Receive Date: 20130228
  Receipt Date: 20130228
  Transmission Date: 20140127
  Serious: Yes (Hospitalization)
  Sender: FDA-Public Use
  Company Number: US-PFIZER INC-2013069632

PATIENT
  Age: 89 Year
  Sex: Male

DRUGS (2)
  1. MORPHINE SULFATE [Suspect]
     Dosage: UNK
  2. HYPERTONIC SALINE [Concomitant]
     Indication: CORNEAL OEDEMA
     Route: 047

REACTIONS (1)
  - Cognitive disorder [Not Recovered/Not Resolved]
